FAERS Safety Report 5924518-5 (Version None)
Quarter: 2008Q4

REPORT INFORMATION
  Report Type: 
  Country: None (occurrence: None)
  Receive Date: 20081020
  Receipt Date: 20081009
  Transmission Date: 20090506
  Serious: Yes (Hospitalization, Other)
  Sender: FDA-Public Use
  Company Number: US-AMGEN-QUU298671

PATIENT
  Sex: Male

DRUGS (7)
  1. ENBREL [Suspect]
     Indication: RHEUMATOID ARTHRITIS
     Dates: start: 20071201
  2. TESTOSTERONE [Suspect]
     Indication: DRUG USE FOR UNKNOWN INDICATION
     Dates: start: 20080501
  3. PEPCID [Concomitant]
  4. PREDNISONE TAB [Concomitant]
     Dates: end: 20080303
  5. PLAQUENIL [Concomitant]
     Dates: end: 20080512
  6. METHOTREXATE [Concomitant]
     Dates: end: 20080512
  7. OXAPROZIN [Concomitant]
     Dates: end: 20080512

REACTIONS (6)
  - ARTHRALGIA [None]
  - DEEP VEIN THROMBOSIS [None]
  - NECK MASS [None]
  - PLEURITIC PAIN [None]
  - PULMONARY EMBOLISM [None]
  - SYNOVITIS [None]
